FAERS Safety Report 4430805-2 (Version None)
Quarter: 2004Q3

REPORT INFORMATION
  Report Type: 
  Country: None (occurrence: None)
  Receive Date: 20040823
  Receipt Date: 20011031
  Transmission Date: 20050211
  Serious: Yes (Hospitalization, Other)
  Sender: FDA-Public Use
  Company Number: 200122260US

PATIENT
  Sex: Female

DRUGS (4)
  1. LOVENOX [Suspect]
     Indication: DEEP VEIN THROMBOSIS
     Route: 058
  2. BISACODYL [Concomitant]
  3. ACETAMINOPHEN [Concomitant]
  4. PSYLLIUM [Concomitant]

REACTIONS (3)
  - BIOPSY SKIN ABNORMAL [None]
  - DERMATITIS BULLOUS [None]
  - EOSINOPHILIA [None]
